FAERS Safety Report 8194164-4 (Version None)
Quarter: 2012Q1

REPORT INFORMATION
  Report Type: 
  Country: None (occurrence: None)
  Receive Date: 20120308
  Receipt Date: 20120228
  Transmission Date: 20120608
  Serious: Yes (Hospitalization)
  Sender: FDA-Public Use
  Company Number: US-SANOFI-AVENTIS-2012SA014455

PATIENT
  Sex: Male

DRUGS (20)
  1. PROMETHAZINE [Concomitant]
  2. VITAMIN B-12 [Concomitant]
     Dates: start: 20111228
  3. DEXAMETHASONE [Concomitant]
  4. SENOKOT /UNK/ [Concomitant]
     Dates: start: 20110622
  5. NEULASTA [Concomitant]
  6. CISPLATIN [Suspect]
     Indication: LARYNGEAL CANCER STAGE IV
     Route: 065
     Dates: start: 20111229, end: 20120118
  7. HYDROCODONE BITARTRATE [Concomitant]
     Dates: start: 20110622
  8. ONDANSETRON [Concomitant]
     Dates: start: 20111228
  9. ERLOTINIB HYDROCHLORIDE [Suspect]
     Indication: LARYNGEAL CANCER STAGE IV
     Route: 048
     Dates: start: 20111229
  10. XANAX [Concomitant]
     Dates: start: 20110622
  11. FISH OIL [Concomitant]
     Dates: start: 20111228
  12. ERLOTINIB HYDROCHLORIDE [Suspect]
     Route: 048
     Dates: start: 20120113
  13. LEVOTHYROXINE SODIUM [Concomitant]
     Dates: start: 20111228
  14. NORCO [Concomitant]
  15. FLAXSEED OIL [Concomitant]
     Dates: start: 20110128
  16. DOCETAXEL [Suspect]
     Indication: LARYNGEAL CANCER STAGE IV
     Route: 065
     Dates: start: 20111229, end: 20120118
  17. ALPRAZOLAM [Concomitant]
  18. MULTI-VITAMINS [Concomitant]
     Dates: start: 20111228
  19. NYSTATIN [Concomitant]
  20. PHENERGAN [Concomitant]
     Dates: start: 20110622

REACTIONS (13)
  - LEUKOCYTOSIS [None]
  - ANAEMIA [None]
  - RASH [None]
  - UPPER GASTROINTESTINAL HAEMORRHAGE [None]
  - OESOPHAGEAL ULCER [None]
  - BARRETT'S OESOPHAGUS [None]
  - DISEASE PROGRESSION [None]
  - OFF LABEL USE [None]
  - GASTRIC ULCER [None]
  - SKIN DISORDER [None]
  - DUODENITIS [None]
  - HIATUS HERNIA [None]
  - PLATELET COUNT DECREASED [None]
